FAERS Safety Report 25595141 (Version 1)
Quarter: 2025Q3

REPORT INFORMATION
  Report Type: Spontaneous
  Country: US (occurrence: US)
  Receive Date: 20250723
  Receipt Date: 20250723
  Transmission Date: 20251020
  Serious: No
  Sender: JOHNSON AND JOHNSON
  Company Number: US-JNJFOC-20250721108

PATIENT
  Age: 78 Year

DRUGS (1)
  1. TREMFYA [Suspect]
     Active Substance: GUSELKUMAB
     Indication: Crohn^s disease
     Dates: start: 20250603

REACTIONS (4)
  - Bile acid malabsorption [Unknown]
  - Drug ineffective [Unknown]
  - Discomfort [Unknown]
  - Diarrhoea [Unknown]
